FAERS Safety Report 8993050 (Version 1)
Quarter: 2013Q1

REPORT INFORMATION
  Report Type: Spontaneous
  Country: ES (occurrence: ES)
  Receive Date: 20130102
  Receipt Date: 20130102
  Transmission Date: 20140127
  Serious: Yes (Other)
  Sender: FDA-Public Use
  Company Number: ES-JNJFOC-20121212482

PATIENT
  Age: 28 Year
  Sex: Male

DRUGS (1)
  1. RISPERDAL CONSTA [Suspect]
     Indication: SCHIZOPHRENIA
     Route: 030
     Dates: start: 20110706

REACTIONS (2)
  - Diabetes mellitus [Not Recovered/Not Resolved]
  - Obesity [Not Recovered/Not Resolved]
